FAERS Safety Report 15636264 (Version 2)
Quarter: 2019Q1

REPORT INFORMATION
  Report Type: Report from Study
  Country: US (occurrence: US)
  Receive Date: 20181120
  Receipt Date: 20190123
  Transmission Date: 20190417
  Serious: Yes (Hospitalization, Other)
  Sender: FDA-Public Use
  Company Number: US-BRISTOL-MYERS SQUIBB COMPANY-BMS-2018-107810

PATIENT
  Age: 69 Year
  Sex: Male
  Weight: 86.59 kg

DRUGS (3)
  1. ETOPOSIDE. [Suspect]
     Active Substance: ETOPOSIDE
     Indication: SMALL CELL LUNG CANCER
     Dosage: 600 MG, DAYS 1, 2, 3
     Route: 042
     Dates: start: 20181029
  2. NIVOLUMAB [Suspect]
     Active Substance: NIVOLUMAB
     Indication: SMALL CELL LUNG CANCER
     Dosage: 360 MG, DAY 1
     Route: 042
     Dates: start: 20181029
  3. CARBOPLATIN. [Suspect]
     Active Substance: CARBOPLATIN
     Indication: SMALL CELL LUNG CANCER
     Dosage: 600 MG, DAY 1
     Route: 042
     Dates: start: 20181029

REACTIONS (4)
  - Diverticulitis [Recovered/Resolved with Sequelae]
  - Intestinal perforation [Unknown]
  - Urinary retention [Unknown]
  - Delirium [Unknown]

NARRATIVE: CASE EVENT DATE: 20181102
